FAERS Safety Report 8521454-5 (Version None)
Quarter: 2012Q3

REPORT INFORMATION
  Report Type: 
  Country: None (occurrence: None)
  Receive Date: 20120719
  Receipt Date: 20120713
  Transmission Date: 20120928
  Serious: Yes (Hospitalization)
  Sender: FDA-Public Use
  Company Number: SE-TEVA-348080ISR

PATIENT
  Sex: Male

DRUGS (2)
  1. SIMVASTATIN [Suspect]
     Indication: HYPERCHOLESTEROLAEMIA
     Dosage: 20 MILLIGRAM;
     Route: 048
     Dates: start: 20120404, end: 20120501
  2. ALFUZOSIN HCL [Concomitant]

REACTIONS (2)
  - THROMBOCYTOPENIA [None]
  - EPISTAXIS [None]
